FAERS Safety Report 20009596 (Version 1)
Quarter: 2021Q4

REPORT INFORMATION
  Report Type: Spontaneous
  Country: US (occurrence: US)
  Receive Date: 20211028
  Receipt Date: 20211028
  Transmission Date: 20220303
  Serious: Yes (Death)
  Sender: FDA-Public Use
  Company Number: None

PATIENT
  Age: 76 Year
  Sex: Female

DRUGS (11)
  1. REPATHA [Suspect]
     Active Substance: EVOLOCUMAB
     Indication: Hyperlipidaemia
     Dosage: ?          OTHER FREQUENCY:Q 2 WEEKS;
     Route: 058
     Dates: start: 20210205, end: 20211022
  2. AMLODIPINE [Concomitant]
     Active Substance: AMLODIPINE BESYLATE
  3. CALCIUM CITRATE [Concomitant]
     Active Substance: CALCIUM CITRATE
  4. CLOPIDOGREL [Concomitant]
     Active Substance: CLOPIDOGREL BISULFATE
  5. FERROUS SULFATE [Concomitant]
     Active Substance: FERROUS SULFATE
  6. METFORMIN [Concomitant]
     Active Substance: METFORMIN HYDROCHLORIDE
  7. METOPROLOL [Concomitant]
     Active Substance: METOPROLOL
  8. ROSUVASTATIN [Concomitant]
     Active Substance: ROSUVASTATIN
  9. FUROSEMIDE [Concomitant]
     Active Substance: FUROSEMIDE
  10. HUMULIN N [Concomitant]
     Active Substance: INSULIN HUMAN
  11. LISINOPRIL [Concomitant]
     Active Substance: LISINOPRIL

REACTIONS (1)
  - Death [None]

NARRATIVE: CASE EVENT DATE: 20211022
